FAERS Safety Report 8367675-6 (Version None)
Quarter: 2012Q2

REPORT INFORMATION
  Report Type: 
  Country: None (occurrence: None)
  Receive Date: 20120517
  Receipt Date: 20100910
  Transmission Date: 20120825
  Serious: Yes (Hospitalization)
  Sender: FDA-Public Use
  Company Number: US-GLAXOSMITHKLINE-A0881506A

PATIENT
  Sex: Female
  Weight: 127.3 kg

DRUGS (5)
  1. GLYBURIDE [Concomitant]
  2. ATENOLOL [Concomitant]
  3. AVANDIA [Suspect]
     Indication: DIABETES MELLITUS
     Dosage: 4MG PER DAY
     Route: 048
     Dates: end: 20070101
  4. ZOCOR [Concomitant]
  5. SYNTHROID [Concomitant]

REACTIONS (3)
  - CARDIAC FAILURE CONGESTIVE [None]
  - PULMONARY EMBOLISM [None]
  - CORONARY ARTERY DISEASE [None]
